FAERS Safety Report 8253584-X (Version None)
Quarter: 2012Q2

REPORT INFORMATION
  Report Type: 
  Country: None (occurrence: None)
  Receive Date: 20120402
  Receipt Date: 20120307
  Transmission Date: 20120825
  Serious: No
  Sender: FDA-Public Use
  Company Number: US-AMGEN-USASP2012014987

PATIENT
  Age: 63 Year
  Sex: Female

DRUGS (1)
  1. ENBREL [Suspect]
     Indication: RHEUMATOID ARTHRITIS
     Dosage: 25 MG, 2 TIMES/WK
     Dates: start: 20080929, end: 20120225

REACTIONS (5)
  - COUGH [None]
  - BRONCHITIS [None]
  - DYSPHONIA [None]
  - PYREXIA [None]
  - CHEST PAIN [None]
